FAERS Safety Report 18255888 (Version 1)
Quarter: 2020Q3

REPORT INFORMATION
  Report Type: Other
  Country: US (occurrence: US)
  Receive Date: 20200910
  Receipt Date: 20200910
  Transmission Date: 20201103
  Serious: No
  Sender: FDA-Public Use
  Company Number: US-LEADIANT BIOSCIENCES INC-2019STPI000522

PATIENT

DRUGS (22)
  1. MATULANE [Suspect]
     Active Substance: PROCARBAZINE HYDROCHLORIDE
     Indication: DIFFUSE LARGE B-CELL LYMPHOMA
     Dosage: 100 MILLIGRAM, QD  FOR 10 DAYS
     Route: 048
     Dates: start: 20190829
  2. RITUXAN [Concomitant]
     Active Substance: RITUXIMAB
  3. ASPIRIN [ACETYLSALICYLIC ACID] [Concomitant]
     Active Substance: ASPIRIN
  4. LOSARTAN. [Concomitant]
     Active Substance: LOSARTAN
  5. PREDNISONE. [Concomitant]
     Active Substance: PREDNISONE
  6. ETOPOSIDE. [Concomitant]
     Active Substance: ETOPOSIDE
  7. ALLOPURINOL. [Concomitant]
     Active Substance: ALLOPURINOL
  8. ATORVASTATIN [Concomitant]
     Active Substance: ATORVASTATIN
  9. PROCHLORPERAZINE. [Concomitant]
     Active Substance: PROCHLORPERAZINE
  10. SPIRONOLACTONE. [Concomitant]
     Active Substance: SPIRONOLACTONE
  11. DOXORUBICIN [Concomitant]
     Active Substance: DOXORUBICIN
  12. KEFLEX [Concomitant]
     Active Substance: CEPHALEXIN
  13. CYCLOPHOSPHAMIDE. [Concomitant]
     Active Substance: CYCLOPHOSPHAMIDE
  14. POTASSIUM [Concomitant]
     Active Substance: POTASSIUM
  15. ZOFRAN [Concomitant]
     Active Substance: ONDANSETRON HYDROCHLORIDE
  16. ONDANSETRON [Concomitant]
     Active Substance: ONDANSETRON
  17. IBUPROFEN. [Concomitant]
     Active Substance: IBUPROFEN
  18. TYLENOL [Concomitant]
     Active Substance: ACETAMINOPHEN
  19. VINCRISTINE [Concomitant]
     Active Substance: VINCRISTINE
  20. DEXAMETHASON [DEXAMETHASONE] [Concomitant]
     Active Substance: DEXAMETHASONE
  21. FAMOTIDINE. [Concomitant]
     Active Substance: FAMOTIDINE
  22. SODIUM CHLORIDE. [Concomitant]
     Active Substance: SODIUM CHLORIDE

REACTIONS (1)
  - Neutropenia [Not Recovered/Not Resolved]
